FAERS Safety Report 16729013 (Version 1)
Quarter: 2019Q3

REPORT INFORMATION
  Report Type: Spontaneous
  Country: US (occurrence: US)
  Receive Date: 20190822
  Receipt Date: 20190822
  Transmission Date: 20191005
  Serious: Yes (Other)
  Sender: FDA-Public Use
  Company Number: US-PFIZER INC-2019357694

PATIENT
  Sex: Male

DRUGS (8)
  1. ARA-C [Concomitant]
     Active Substance: CYTARABINE
     Dosage: UNK UNK, WEEKLY
  2. 6-MERCAPTOPURINE MONOHYDRATE [Suspect]
     Active Substance: MERCAPTOPURINE
     Indication: ACUTE LYMPHOCYTIC LEUKAEMIA
     Dosage: UNK
     Dates: end: 20190513
  3. JAKAFI [Suspect]
     Active Substance: RUXOLITINIB
     Dosage: UNK
     Dates: end: 20190513
  4. METHOTREXATE SODIUM. [Suspect]
     Active Substance: METHOTREXATE SODIUM
     Indication: ACUTE LYMPHOCYTIC LEUKAEMIA
     Dosage: UNK
     Route: 037
     Dates: end: 20190513
  5. VINCRISTINE SULFATE. [Suspect]
     Active Substance: VINCRISTINE SULFATE
     Indication: ACUTE LYMPHOCYTIC LEUKAEMIA
     Dosage: UNK
     Dates: end: 20190513
  6. JAKAFI [Suspect]
     Active Substance: RUXOLITINIB
     Indication: ACUTE LYMPHOCYTIC LEUKAEMIA
     Dosage: 65 MG, CYCLIC (DISCONTINUOUS DOSING: 14 DAYS ON/14 DAYS OFF)
     Dates: start: 20181229
  7. JAKAFI [Suspect]
     Active Substance: RUXOLITINIB
     Dosage: 75 MG, 2X/DAY (DISCONTINUOUS DOSING: 14 DAYS ON/14 DAYS OFF)
     Dates: start: 20190308, end: 20190515
  8. HYDROCORTISONE. [Concomitant]
     Active Substance: HYDROCORTISONE
     Dosage: UNK UNK, WEEKLY

REACTIONS (6)
  - Neutropenia [Recovering/Resolving]
  - Central nervous system leukaemia [Recovering/Resolving]
  - Off label use [Unknown]
  - Blast cells present [Recovering/Resolving]
  - Intentional product misuse [Unknown]
  - Leukaemia recurrent [Recovering/Resolving]

NARRATIVE: CASE EVENT DATE: 20190408
